FAERS Safety Report 18078658 (Version 1)
Quarter: 2020Q3

REPORT INFORMATION
  Report Type: Spontaneous
  Country: RO (occurrence: RO)
  Receive Date: 20200728
  Receipt Date: 20200728
  Transmission Date: 20201103
  Serious: Yes (Death, Other)
  Sender: FDA-Public Use
  Company Number: RO-009507513-2007ROM009276

PATIENT
  Age: 65 Year
  Sex: Male

DRUGS (3)
  1. PEMETREXED DISODIUM [Suspect]
     Active Substance: PEMETREXED DISODIUM
     Indication: LUNG ADENOCARCINOMA
     Dosage: UNK
  2. PEMBROLIZUMAB. [Suspect]
     Active Substance: PEMBROLIZUMAB
     Indication: LUNG ADENOCARCINOMA
     Dosage: 2 CYCLES
  3. CARBOPLATIN. [Suspect]
     Active Substance: CARBOPLATIN
     Indication: LUNG ADENOCARCINOMA
     Dosage: UNK

REACTIONS (8)
  - Immune-mediated renal disorder [Unknown]
  - Asthenia [Unknown]
  - Death [Fatal]
  - Nephropathy [Unknown]
  - Fatigue [Unknown]
  - Haemoptysis [Unknown]
  - Anaemia [Unknown]
  - Cough [Unknown]

NARRATIVE: CASE EVENT DATE: 202004
